FAERS Safety Report 18241581 (Version 1)
Quarter: 2020Q3

REPORT INFORMATION
  Report Type: Spontaneous
  Country: DK (occurrence: DK)
  Receive Date: 20200908
  Receipt Date: 20200908
  Transmission Date: 20201103
  Serious: Yes (Other)
  Sender: FDA-Public Use
  Company Number: DK-ROCHE-2673296

PATIENT
  Age: 38 Year
  Sex: Female

DRUGS (2)
  1. PREDNISOLONE. [Concomitant]
     Active Substance: PREDNISOLONE
     Indication: RHEUMATOID ARTHRITIS
     Dosage: DOSE UNKNOWN BUT 2.5 MG DAILY IN JAN2016?STRENGTH: UNKNOWN
     Route: 048
  2. MABTHERA [Suspect]
     Active Substance: RITUXIMAB
     Indication: RHEUMATOID ARTHRITIS
     Dosage: DOSE: 2 TIMES WITH 14 DAYS BETWEEN EVERY 6 MONTHS?STENGTH: UNKNOWN
     Route: 041
     Dates: start: 20151001, end: 20170420

REACTIONS (2)
  - Secondary immunodeficiency [Unknown]
  - Infection susceptibility increased [Unknown]
